FAERS Safety Report 8791569 (Version 1)
Quarter: 2012Q4

REPORT INFORMATION
  Report Type: 
  Country: RU (occurrence: None)
  Receive Date: 20120913
  Receipt Date: 20120913
  Transmission Date: 20130627
  Serious: Yes (Life-Threatening, Hospitalization)
  Sender: FDA-Public Use
  Company Number: ACET20120014

PATIENT
  Age: 17 Year
  Sex: Female
  Weight: 50 kg

DRUGS (1)
  1. Q-PAP TABLETS 325MG (PARACETAMOL) (TABLETS) [Suspect]
     Indication: PRODUCT USED FOR UNKNOWN INDICATION
     Dosage: 20,000 mg, 40 tablets, oral
     Route: 048
     Dates: start: 20101115, end: 20101115

REACTIONS (22)
  - Toxicity to various agents [None]
  - Suicide attempt [None]
  - Intentional overdose [None]
  - Acute hepatic failure [None]
  - Nephropathy [None]
  - Toxic encephalopathy [None]
  - Heart rate increased [None]
  - Hepatomegaly [None]
  - Haemoglobin increased [None]
  - Red blood cell count decreased [None]
  - Shift to the left [None]
  - Prothrombin time prolonged [None]
  - Hyperkalaemia [None]
  - Hyponatraemia [None]
  - Protein total increased [None]
  - Coagulopathy [None]
  - Leukopenia [None]
  - Hepatic necrosis [None]
  - Drug ineffective [None]
  - Blood chloride decreased [None]
  - Haemoglobin decreased [None]
  - Renal impairment [None]
